FAERS Safety Report 14979883 (Version 1)
Quarter: 2018Q3

REPORT INFORMATION
  Report Type: Spontaneous
  Country: LU (occurrence: LU)
  Receive Date: 20180606
  Receipt Date: 20180606
  Transmission Date: 20181010
  Serious: Yes (Other)
  Sender: FDA-Public Use
  Company Number: LU-B. BRAUN MEDICAL INC.-2049078

PATIENT
  Age: 64 Year
  Sex: Male

DRUGS (22)
  1. JARDIANCE [Concomitant]
     Active Substance: EMPAGLIFLOZIN
  2. ATROPINE. [Suspect]
     Active Substance: ATROPINE
     Dates: start: 20170714, end: 20170714
  3. CARVEDILOL. [Suspect]
     Active Substance: CARVEDILOL
     Route: 048
  4. LIDOCAINE HYDROCHLORIDE AND DEXTROSE [Suspect]
     Active Substance: DEXTROSE\LIDOCAINE HYDROCHLORIDE
     Indication: ANAESTHESIA
     Route: 065
     Dates: start: 20170714, end: 20170714
  5. CHLORHEXIDINE GLUCONATE. [Suspect]
     Active Substance: CHLORHEXIDINE GLUCONATE
     Route: 061
     Dates: start: 20170714, end: 20170714
  6. ROCURONIUM BROMIDE. [Suspect]
     Active Substance: ROCURONIUM BROMIDE
     Route: 042
     Dates: start: 20170714, end: 20170714
  7. PERINDOPRIL [Concomitant]
     Active Substance: PERINDOPRIL
  8. FOLIC ACID. [Concomitant]
     Active Substance: FOLIC ACID
  9. BUSCOPAN (BUTYLSCOPOLAMIN BROMIDE) [Suspect]
     Active Substance: BUTYLSCOPOLAMINE BROMIDE
     Dates: start: 20170714, end: 20170714
  10. CISATRACURIUM BESYLATE. [Suspect]
     Active Substance: CISATRACURIUM BESYLATE
     Route: 042
     Dates: start: 20170714, end: 20170714
  11. AMLODIPINE [Concomitant]
     Active Substance: AMLODIPINE BESYLATE
  12. GLUCOPHAGE [Concomitant]
     Active Substance: METFORMIN HYDROCHLORIDE
  13. SEVOFLURANE. [Suspect]
     Active Substance: SEVOFLURANE
     Route: 055
     Dates: start: 20170714, end: 20170714
  14. DEXAMETHASONE. [Suspect]
     Active Substance: DEXAMETHASONE
     Route: 042
     Dates: start: 20170714, end: 20170714
  15. FENTANYL. [Suspect]
     Active Substance: FENTANYL
     Route: 065
     Dates: start: 20170714, end: 20170714
  16. PANTOPRAZOLE [Suspect]
     Active Substance: PANTOPRAZOLE
     Route: 048
     Dates: start: 20170714, end: 20170714
  17. PROPOFOL. [Suspect]
     Active Substance: PROPOFOL
     Route: 042
     Dates: start: 20170714, end: 20170714
  18. METHOTREXATE. [Concomitant]
     Active Substance: METHOTREXATE
  19. ESOMEPRAZOLE SODIUM. [Concomitant]
     Active Substance: ESOMEPRAZOLE SODIUM
  20. MIDAZOLAM [Suspect]
     Active Substance: MIDAZOLAM HYDROCHLORIDE
     Route: 042
     Dates: start: 20170714, end: 20170714
  21. INDAPAMIDE. [Concomitant]
     Active Substance: INDAPAMIDE
  22. ALLOPURINOL. [Concomitant]
     Active Substance: ALLOPURINOL

REACTIONS (1)
  - Anaphylactic reaction [Recovered/Resolved]

NARRATIVE: CASE EVENT DATE: 20170714
